FAERS Safety Report 5035579-2 (Version None)
Quarter: 2006Q2

REPORT INFORMATION
  Report Type: 
  Country: None (occurrence: None)
  Receive Date: 20060526
  Receipt Date: 20060202
  Transmission Date: 20061013
  Serious: No
  Sender: FDA-Public Use
  Company Number: 220641

PATIENT
  Age: 67 Year
  Sex: Female
  Weight: 68 kg

DRUGS (1)
  1. RAPTIVA [Suspect]
     Indication: PSORIASIS
     Dosage: 70 ML, 1/WEEK, SUBCUTANEOUS
     Route: 058
     Dates: start: 20051110, end: 20051215

REACTIONS (2)
  - DERMATITIS [None]
  - OEDEMA PERIPHERAL [None]
